FAERS Safety Report 12756564 (Version 2)
Quarter: 2016Q4

REPORT INFORMATION
  Report Type: Spontaneous
  Country: TR (occurrence: TR)
  Receive Date: 20160917
  Receipt Date: 20161006
  Transmission Date: 20170207
  Serious: Yes (Other)
  Sender: FDA-Public Use
  Company Number: TR-SUN PHARMACEUTICAL INDUSTRIES LTD-2016RR-124120

PATIENT
  Age: 91 Year
  Sex: Female

DRUGS (2)
  1. MEMANTINE. [Concomitant]
     Active Substance: MEMANTINE
     Indication: DEMENTIA ALZHEIMER^S TYPE
     Dosage: 20 MG, DAILY
     Route: 065
  2. LORAZEPAM. [Suspect]
     Active Substance: LORAZEPAM
     Indication: INSOMNIA
     Dosage: 1.25 MG, DAILY
     Route: 065

REACTIONS (5)
  - Somnolence [Recovering/Resolving]
  - Treatment failure [Unknown]
  - Cognitive disorder [Recovering/Resolving]
  - Depression [Recovering/Resolving]
  - Impaired self-care [Recovering/Resolving]
